FAERS Safety Report 21867994 (Version 1)
Quarter: 2023Q1

REPORT INFORMATION
  Report Type: Spontaneous
  Country: BE (occurrence: BE)
  Receive Date: 20230116
  Receipt Date: 20230116
  Transmission Date: 20230417
  Serious: Yes (Death, Hospitalization, Other)
  Sender: FDA-Public Use
  Company Number: BE-AMGEN-BELSP2022200576

PATIENT
  Sex: Female
  Weight: 83 kg

DRUGS (22)
  1. UNSPECIFIED INGREDIENT [Suspect]
     Active Substance: UNSPECIFIED INGREDIENT
     Indication: Product used for unknown indication
     Dosage: UNK
  2. KYPROLIS [Suspect]
     Active Substance: CARFILZOMIB
     Indication: Product used for unknown indication
     Dosage: 70 MG/M2
     Dates: start: 20221107
  3. KYPROLIS [Suspect]
     Active Substance: CARFILZOMIB
     Dosage: 20 MG/M2, Q WEEK
     Dates: start: 20221031
  4. XULTOPHY 100/3.6 [Concomitant]
     Active Substance: INSULIN DEGLUDEC\LIRAGLUTIDE
     Dosage: UNK UNK, QD (36 E ^S IN THE MORNING)
  5. ALLOPURINOL [Concomitant]
     Active Substance: ALLOPURINOL
     Dosage: 300 MG, QD
  6. ACYCLOVIR [Concomitant]
     Active Substance: ACYCLOVIR
     Indication: Herpes zoster
     Dosage: 800 MILLIGRAM, BID (2XL/2/D)
  7. ACYCLOVIR [Concomitant]
     Active Substance: ACYCLOVIR
     Indication: Prophylaxis
  8. CRESTOR [Concomitant]
     Active Substance: ROSUVASTATIN CALCIUM
     Dosage: 10 MG
  9. METFORMIN HYDROCHLORIDE [Concomitant]
     Active Substance: METFORMIN HYDROCHLORIDE
     Dosage: 850 MILLIGRAM (2 X 1/2 OF 850MG)
  10. STEOVIT FORTE [Concomitant]
     Dosage: UNK, QD
  11. PROPRANOLOL HYDROCHLORIDE [Concomitant]
     Active Substance: PROPRANOLOL HYDROCHLORIDE
     Dosage: 160 MILLIGRAM, QD (1/D)
  12. QUESTRAN [Concomitant]
     Active Substance: CHOLESTYRAMINE
     Indication: Diarrhoea
  13. QUESTRAN [Concomitant]
     Active Substance: CHOLESTYRAMINE
     Indication: Prophylaxis
  14. BETAHISTINE [Concomitant]
     Active Substance: BETAHISTINE
     Dosage: UNK UNK, BID (2/D)
  15. GLICLAZIDE [Concomitant]
     Active Substance: GLICLAZIDE
     Dosage: 60 MILLIGRAM, QD (1 TABLET)
  16. MAGNECAPS [Concomitant]
     Dosage: UNK UNK, QD (1X/D)
  17. IMODIUM [Concomitant]
     Active Substance: LOPERAMIDE HYDROCHLORIDE
     Indication: Prophylaxis
     Dosage: UNK UNK, TID (3X/D)
  18. IMODIUM [Concomitant]
     Active Substance: LOPERAMIDE HYDROCHLORIDE
     Indication: Diarrhoea
  19. CYANOCOBALAMIN\PYRIDOXINE\RIBOFLAVIN\THIAMINE [Concomitant]
     Active Substance: CYANOCOBALAMIN\PYRIDOXINE\RIBOFLAVIN\THIAMINE
     Indication: Alopecia
  20. DEXAMETHASONE [Concomitant]
     Active Substance: DEXAMETHASONE
     Indication: Product used for unknown indication
     Dosage: UNK
     Dates: start: 20221031
  21. ASPIRIN [Concomitant]
     Active Substance: ASPIRIN
     Dosage: 80 MG
  22. INSULIN ASPART [Concomitant]
     Active Substance: INSULIN ASPART
     Dosage: UNK (30 15E ^S IN THE MORNING ON DAYS OF DEXAMETHASONE)

REACTIONS (13)
  - Cardiac arrest [Fatal]
  - Diarrhoea [Unknown]
  - Respiratory distress [Fatal]
  - Renal failure [Unknown]
  - Thrombocytopenia [Unknown]
  - Aphasia [Recovered/Resolved]
  - Dyspnoea [Unknown]
  - Red blood cell abnormality [Unknown]
  - Blood lactate dehydrogenase increased [Unknown]
  - Asthenia [Unknown]
  - Serum ferritin increased [Unknown]
  - Confusional state [Unknown]
  - Pyrexia [Unknown]

NARRATIVE: CASE EVENT DATE: 20201110
